FAERS Safety Report 5753149-5 (Version None)
Quarter: 2008Q2

REPORT INFORMATION
  Report Type: 
  Country: None (occurrence: None)
  Receive Date: 20080530
  Receipt Date: 20080521
  Transmission Date: 20081010
  Serious: Yes (Hospitalization)
  Sender: FDA-Public Use
  Company Number: US-JNJFOC-20080504727

PATIENT
  Sex: Female
  Weight: 98.88 kg

DRUGS (5)
  1. FENTANYL TRANSDERMAL SYSTEM [Suspect]
     Route: 062
  2. FENTANYL TRANSDERMAL SYSTEM [Suspect]
     Indication: PAIN
     Route: 062
  3. VYTORIN [Concomitant]
     Indication: BLOOD CHOLESTEROL INCREASED
     Dosage: 10/40 MG DAILY
     Route: 048
  4. SOMA [Concomitant]
     Indication: SLEEP DISORDER
     Dosage: AS NEEDED AT BEDTIME
     Route: 048
  5. TYLENOL W/ CODEINE [Concomitant]
     Indication: PAIN
     Route: 048

REACTIONS (6)
  - BRAIN OPERATION [None]
  - DRUG DOSE OMISSION [None]
  - ERYTHEMA [None]
  - FEELING HOT [None]
  - HYPERHIDROSIS [None]
  - WITHDRAWAL SYNDROME [None]
